FAERS Safety Report 19072879 (Version 1)
Quarter: 2021Q1

REPORT INFORMATION
  Report Type: Spontaneous
  Country: FR (occurrence: FR)
  Receive Date: 20210330
  Receipt Date: 20210330
  Transmission Date: 20210420
  Serious: Yes (Death)
  Sender: FDA-Public Use
  Company Number: FR-ROCHE-2796085

PATIENT
  Age: 42 Year
  Sex: Male

DRUGS (7)
  1. TEMAZEPAM. [Suspect]
     Active Substance: TEMAZEPAM
     Indication: DRUG ABUSE
     Route: 065
     Dates: end: 2021
  2. OLANZAPINE. [Suspect]
     Active Substance: OLANZAPINE
     Indication: DRUG ABUSE
     Dosage: 25 MCG/L
     Route: 065
     Dates: end: 2021
  3. PAROXETINE HYDROCHLORIDE. [Suspect]
     Active Substance: PAROXETINE HYDROCHLORIDE
     Indication: DRUG ABUSE
     Dosage: 227 MCG/L
     Route: 065
     Dates: end: 2021
  4. NORDAZEPAM [Suspect]
     Active Substance: NORDAZEPAM
     Indication: DRUG ABUSE
     Dosage: 588 MCG/L
     Route: 065
     Dates: end: 2021
  5. METHADONE AP HP [Suspect]
     Active Substance: METHADONE HYDROCHLORIDE
     Indication: DRUG ABUSE
     Dosage: 1020 MCG/L
     Route: 065
     Dates: end: 2021
  6. DIAZEPAM. [Suspect]
     Active Substance: DIAZEPAM
     Indication: DRUG ABUSE
     Dosage: 534 MCG/L
     Route: 065
     Dates: end: 2021
  7. OXAZEPAM. [Suspect]
     Active Substance: OXAZEPAM
     Indication: DRUG ABUSE
     Route: 065
     Dates: end: 2021

REACTIONS (3)
  - Gastrointestinal haemorrhage [Fatal]
  - Respiratory depression [Fatal]
  - Drug abuse [Fatal]

NARRATIVE: CASE EVENT DATE: 2021
